FAERS Safety Report 20693735 (Version 4)
Quarter: 2022Q2

REPORT INFORMATION
  Report Type: Spontaneous
  Country: US (occurrence: US)
  Receive Date: 20220411
  Receipt Date: 20220622
  Transmission Date: 20220720
  Serious: Yes (Hospitalization, Other)
  Sender: FDA-Public Use
  Company Number: US-UCBSA-2022019548

PATIENT
  Sex: Female
  Weight: 50.34 kg

DRUGS (1)
  1. CIMZIA [Suspect]
     Active Substance: CERTOLIZUMAB PEGOL
     Indication: Rheumatoid arthritis
     Dosage: 200 MILLIGRAM, EV 2 WEEKS(QOW)
     Route: 058
     Dates: start: 202201, end: 2022

REACTIONS (9)
  - Complication associated with device [Unknown]
  - Hand fracture [Unknown]
  - Lupus-like syndrome [Unknown]
  - Alopecia [Unknown]
  - Headache [Unknown]
  - Nausea [Unknown]
  - Abdominal pain upper [Unknown]
  - Arthralgia [Unknown]
  - Ill-defined disorder [Unknown]

NARRATIVE: CASE EVENT DATE: 20220101
